FAERS Safety Report 8155764-0 (Version None)
Quarter: 2012Q1

REPORT INFORMATION
  Report Type: 
  Country: None (occurrence: None)
  Receive Date: 20120222
  Receipt Date: 20120213
  Transmission Date: 20120608
  Serious: Yes (Hospitalization, Other)
  Sender: FDA-Public Use
  Company Number: US-BAYER-2011-036926

PATIENT
  Age: 27 Year
  Sex: Female
  Weight: 131.52 kg

DRUGS (16)
  1. MERIDIA [Concomitant]
     Dosage: 10 MG, QD
     Route: 048
     Dates: start: 20090302
  2. AMITRIPTYLINE HCL [Concomitant]
     Dosage: 25 MG, HS
     Route: 048
     Dates: start: 20080903
  3. AMITRIPTYLINE HCL [Concomitant]
     Dosage: 25 MG, HS
     Route: 048
     Dates: start: 20081005
  4. YASMIN [Suspect]
     Indication: PRODUCT USED FOR UNKNOWN INDICATION
     Dosage: UNK
     Dates: start: 20050501, end: 20100101
  5. DROSPIRENONE AND ETHINYL ESTRADIOL [Suspect]
     Indication: PRODUCT USED FOR UNKNOWN INDICATION
     Dosage: UNK
     Dates: start: 20050101, end: 20100101
  6. PREVACID [Concomitant]
     Dosage: 30 MG, QD
     Route: 048
     Dates: start: 20040101
  7. MERIDIA [Concomitant]
     Dosage: 10 MG, QD
     Route: 048
     Dates: start: 20081005
  8. AMITRIPTYLINE HCL [Concomitant]
     Dosage: 25 MG, HS
     Route: 048
     Dates: start: 20090415
  9. RISPERDAL [Concomitant]
     Indication: BIPOLAR DISORDER
     Dosage: 1 MG, QD
     Route: 048
     Dates: start: 20040101
  10. AZITHROMYCIN [Concomitant]
     Dosage: 500MG DAY1, THEN 250MG DAILY
     Route: 048
     Dates: start: 20091107
  11. TRAZODONE HYDROCHLORIDE [Concomitant]
     Dosage: 50 MG, QD AT BEDTIME
     Route: 048
     Dates: start: 20090415
  12. AZITHROMYCIN [Concomitant]
     Dosage: 500MG DAY1, THEN 250MG DAILY
     Route: 048
     Dates: start: 20080918
  13. AZITHROMYCIN [Concomitant]
     Dosage: 500MG DAY1, THEN 250MG DAILY
     Route: 048
     Dates: start: 20081227
  14. MERIDIA [Concomitant]
     Dosage: 10 MG, QD
     Route: 048
     Dates: start: 20080903
  15. AZITHROMYCIN [Concomitant]
     Dosage: 500MG DAY1, THEN 250MG DAILY
     Route: 048
     Dates: start: 20090219
  16. TRAZODONE HYDROCHLORIDE [Concomitant]
     Dosage: 50 MG, QD AT BEDTIME
     Route: 048
     Dates: start: 20081005

REACTIONS (4)
  - CHOLELITHIASIS [None]
  - INJURY [None]
  - PAIN [None]
  - GALLBLADDER NON-FUNCTIONING [None]
